FAERS Safety Report 6213366-7 (Version None)
Quarter: 2009Q2

REPORT INFORMATION
  Report Type: 
  Country: None (occurrence: None)
  Receive Date: 20090603
  Receipt Date: 20090528
  Transmission Date: 20091009
  Serious: Yes (Hospitalization)
  Sender: FDA-Public Use
  Company Number: JP-ABBOTT-08P-163-0494465-00

PATIENT
  Sex: Female
  Weight: 36 kg

DRUGS (12)
  1. HUMIRA [Suspect]
     Indication: RHEUMATOID ARTHRITIS
     Route: 058
     Dates: start: 20081113, end: 20081127
  2. ISONIAZID [Concomitant]
     Indication: ANTIBIOTIC PROPHYLAXIS
     Route: 048
     Dates: start: 20081023, end: 20081211
  3. METHOTREXATE [Concomitant]
     Indication: RHEUMATOID ARTHRITIS
     Route: 048
     Dates: end: 20081211
  4. METHOTREXATE [Concomitant]
  5. METHOTREXATE [Concomitant]
     Dates: start: 20090512
  6. INDOMETACIN FARNESIL [Concomitant]
     Indication: RHEUMATOID ARTHRITIS
     Route: 048
     Dates: end: 20081211
  7. INDOMETACIN FARNESIL [Concomitant]
     Route: 048
     Dates: end: 20090407
  8. FOLIC ACID [Concomitant]
     Indication: PROPHYLAXIS
     Route: 048
     Dates: start: 20060112
  9. ALENDRONATE SODIUM [Concomitant]
     Indication: OSTEOPOROSIS
     Route: 048
     Dates: start: 20011227
  10. CALCIUM L-ASPARATE HYDRATE [Concomitant]
     Indication: OSTEOPOROSIS
     Route: 048
     Dates: start: 20060323
  11. ALFACALCIDOL [Concomitant]
     Indication: OSTEOPOROSIS
     Route: 048
     Dates: start: 19931001
  12. INFLUENZA VACCINE [Concomitant]
     Indication: INFLUENZA IMMUNISATION
     Dates: start: 20081203, end: 20081203

REACTIONS (1)
  - ENTEROCOLITIS BACTERIAL [None]
